FAERS Safety Report 7988909-3 (Version None)
Quarter: 2011Q4

REPORT INFORMATION
  Report Type: 
  Country: None (occurrence: None)
  Receive Date: 20111215
  Receipt Date: 20111215
  Transmission Date: 20120403
  Serious: Yes (Hospitalization, Disabling, Other)
  Sender: FDA-Public Use
  Company Number: None

PATIENT
  Sex: Male
  Weight: 70.3075 kg

DRUGS (1)
  1. LEVOFLOXACIN [Suspect]
     Indication: PROSTATITIS
     Dosage: 30 1 PER DAY
     Dates: start: 20111019, end: 20111107

REACTIONS (3)
  - BURNING SENSATION [None]
  - DIZZINESS [None]
  - DYSPEPSIA [None]
